FAERS Safety Report 25358399 (Version 1)
Quarter: 2025Q2

REPORT INFORMATION
  Report Type: Spontaneous
  Country: CN (occurrence: CN)
  Receive Date: 20250526
  Receipt Date: 20250526
  Transmission Date: 20250716
  Serious: Yes (Death, Hospitalization, Other)
  Sender: ROCHE
  Company Number: CN-ROCHE-10000289218

PATIENT
  Sex: Female

DRUGS (8)
  1. TRASTUZUMAB EMTANSINE [Suspect]
     Active Substance: TRASTUZUMAB EMTANSINE
     Indication: Breast cancer
     Route: 042
     Dates: start: 20240325, end: 20240913
  2. TRASTUZUMAB EMTANSINE [Suspect]
     Active Substance: TRASTUZUMAB EMTANSINE
     Route: 042
     Dates: start: 20240725
  3. HERCEPTIN [Suspect]
     Active Substance: TRASTUZUMAB
     Indication: Breast cancer
     Route: 065
     Dates: start: 20210629
  4. PERJETA [Suspect]
     Active Substance: PERTUZUMAB
     Indication: Breast cancer
     Route: 065
     Dates: start: 20210629
  5. PACLITAXEL [Suspect]
     Active Substance: PACLITAXEL
     Indication: Breast cancer
     Route: 065
     Dates: start: 20210629
  6. Bicyclol Tablets [Concomitant]
     Indication: Hepatic function abnormal
     Route: 048
     Dates: start: 20240418
  7. URSODIOL [Concomitant]
     Active Substance: URSODIOL
     Indication: Hepatic function abnormal
     Route: 048
     Dates: start: 20240726
  8. DOXOFYLLINE [Concomitant]
     Active Substance: DOXOFYLLINE
     Indication: Asthma
     Route: 042
     Dates: start: 20241008

REACTIONS (17)
  - Breast neoplasm [Unknown]
  - Lymphadenopathy mediastinal [Unknown]
  - Lung disorder [Unknown]
  - Pulmonary septal thickening [Unknown]
  - Gamma-glutamyltransferase increased [Unknown]
  - Interstitial lung disease [Unknown]
  - Lymphadenopathy [Unknown]
  - Sinusitis [Unknown]
  - Lymphadenopathy [Unknown]
  - Breast disorder [Unknown]
  - Metastases to lung [Unknown]
  - Metastases to liver [Unknown]
  - Metastases to central nervous system [Unknown]
  - Hypoproteinaemia [Unknown]
  - Hyponatraemia [Unknown]
  - Hypoxia [Unknown]
  - Breast cancer [Fatal]

NARRATIVE: CASE EVENT DATE: 20240801
